FAERS Safety Report 23937485 (Version 7)
Quarter: 2025Q1

REPORT INFORMATION
  Report Type: Report from Study
  Country: JP (occurrence: JP)
  Receive Date: 20240604
  Receipt Date: 20250306
  Transmission Date: 20250409
  Serious: Yes (Other)
  Sender: ARGENX BVBA
  Company Number: JP-ARGENX-2024-ARGX-JP003811AA

PATIENT

DRUGS (14)
  1. EFGARTIGIMOD ALFA [Suspect]
     Active Substance: EFGARTIGIMOD ALFA
     Route: 042
     Dates: start: 202302, end: 20240322
  2. EFGARTIGIMOD ALFA\HYALURONIDASE-QVFC [Suspect]
     Active Substance: EFGARTIGIMOD ALFA\HYALURONIDASE-QVFC
     Indication: Myasthenia gravis
     Route: 058
     Dates: start: 20240513, end: 20240603
  3. EFGARTIGIMOD ALFA\HYALURONIDASE-QVFC [Suspect]
     Active Substance: EFGARTIGIMOD ALFA\HYALURONIDASE-QVFC
     Route: 058
     Dates: start: 20240709, end: 20240730
  4. PREDONINE [Concomitant]
     Active Substance: PREDNISOLONE
     Indication: Myasthenia gravis
     Route: 048
  5. PREDONINE [Concomitant]
     Active Substance: PREDNISOLONE
     Dosage: 9 MG, DAILY
     Route: 048
     Dates: end: 20241031
  6. PREDONINE [Concomitant]
     Active Substance: PREDNISOLONE
     Dosage: 5 MG, DAILY
     Route: 048
     Dates: start: 20241101
  7. MESTINON [Concomitant]
     Active Substance: PYRIDOSTIGMINE BROMIDE
     Indication: Myasthenia gravis
     Dosage: 60 MG, BID (MORNING, EVENING)
     Route: 048
  8. SULFAMETHOXAZOLE\TRIMETHOPRIM [Concomitant]
     Active Substance: SULFAMETHOXAZOLE\TRIMETHOPRIM
     Route: 065
  9. LANSOPRAZOLE [Concomitant]
     Active Substance: LANSOPRAZOLE
     Route: 065
  10. PROGRAF [Concomitant]
     Active Substance: TACROLIMUS
     Indication: Myasthenia gravis
     Dosage: UNK, DAILY (NIGHT)
     Route: 048
  11. ROSUVASTATIN [Concomitant]
     Active Substance: ROSUVASTATIN
     Route: 065
  12. LANSOPRAZOLE [Concomitant]
     Active Substance: LANSOPRAZOLE
     Indication: Prophylaxis
     Dosage: 15 MG, DAILY
     Route: 048
  13. CRESTOR [Concomitant]
     Active Substance: ROSUVASTATIN CALCIUM
     Indication: Product used for unknown indication
     Dosage: 2.5 MG, DAILY
     Route: 048
  14. RISEDRONATE SODIUM [Concomitant]
     Active Substance: RISEDRONATE SODIUM
     Indication: Prophylaxis
     Dosage: 75 MG, MONTHLY
     Route: 048

REACTIONS (44)
  - Gastrointestinal lymphoma [Unknown]
  - Grip strength decreased [Unknown]
  - Hyperlipidaemia [Unknown]
  - Hyperparathyroidism [Unknown]
  - Asthenia [Unknown]
  - Muscular weakness [Unknown]
  - Chest discomfort [Unknown]
  - Sense of oppression [Recovered/Resolved]
  - Dyspnoea [Recovered/Resolved]
  - Eyelid ptosis [Unknown]
  - Procedural headache [Recovered/Resolved]
  - Malaise [Unknown]
  - Malaise [Unknown]
  - Sense of oppression [Unknown]
  - Headache [Unknown]
  - Asthenia [Unknown]
  - Diplopia [Unknown]
  - Eyelid ptosis [Unknown]
  - Eyelid ptosis [Unknown]
  - Decreased appetite [Unknown]
  - Anxiety [Unknown]
  - Myasthenia gravis [Unknown]
  - Photophobia [Unknown]
  - Dyspnoea [Unknown]
  - Nausea [Unknown]
  - Malaise [Unknown]
  - Dyspnoea [Recovering/Resolving]
  - Malaise [Unknown]
  - Asthenia [Unknown]
  - Cough [Unknown]
  - Dyspnoea [Unknown]
  - Procedural headache [Unknown]
  - Procedural headache [Recovering/Resolving]
  - Dyspnoea [Recovering/Resolving]
  - Malaise [Recovering/Resolving]
  - Nasopharyngitis [Recovering/Resolving]
  - Physical deconditioning [Unknown]
  - Abdominal pain [Unknown]
  - Injection site erythema [Unknown]
  - Injection site pain [Recovering/Resolving]
  - Injection site pruritus [Recovering/Resolving]
  - Injection site urticaria [Recovering/Resolving]
  - Procedural headache [Unknown]
  - Headache [Unknown]

NARRATIVE: CASE EVENT DATE: 20240513
